FAERS Safety Report 25054135 (Version 1)
Quarter: 2025Q1

REPORT INFORMATION
  Report Type: Spontaneous
  Country: US (occurrence: US)
  Receive Date: 20250307
  Receipt Date: 20250307
  Transmission Date: 20250409
  Serious: No
  Sender: SANOFI AVENTIS
  Company Number: US-SA-2025SA068418

PATIENT
  Age: 5 Year
  Sex: Male

DRUGS (5)
  1. DUPIXENT [Suspect]
     Active Substance: DUPILUMAB
     Indication: Dermatitis atopic
     Dosage: 300 MG, Q4W
     Route: 058
     Dates: start: 202409
  2. CETIRIZINE [Concomitant]
     Active Substance: CETIRIZINE HYDROCHLORIDE
     Indication: Eczema
  3. HYDROCORTISONE [Concomitant]
     Active Substance: HYDROCORTISONE
     Indication: Eczema
     Route: 061
  4. PIMECROLIMUS [Concomitant]
     Active Substance: PIMECROLIMUS
     Indication: Eczema
     Route: 061
  5. TACROLIMUS [Concomitant]
     Active Substance: TACROLIMUS
     Indication: Eczema
     Route: 061

REACTIONS (1)
  - Eczema [Unknown]
